FAERS Safety Report 5657668-1 (Version None)
Quarter: 2008Q1

REPORT INFORMATION
  Report Type: 
  Country: None (occurrence: None)
  Receive Date: 20080310
  Receipt Date: 20080304
  Transmission Date: 20080703
  Serious: Yes (Other)
  Sender: FDA-Public Use
  Company Number: PHNU2008DE00765

PATIENT
  Age: 69 Year
  Sex: Male

DRUGS (6)
  1. THEOPHYLLINE [Concomitant]
     Indication: ASTHMA
  2. ALFUZOSIN HCL [Concomitant]
     Indication: BENIGN PROSTATIC HYPERPLASIA
  3. RAMIPRIL COMP [Concomitant]
  4. ATMADISC [Concomitant]
     Indication: ASTHMA
     Dosage: 1 DF, BID
  5. BERODUAL [Concomitant]
     Dosage: 1 DF, TID
  6. EXFORGE [Suspect]
     Dosage: 1 DF, QD
     Route: 048
     Dates: start: 20071201

REACTIONS (3)
  - ANXIETY [None]
  - HALLUCINATION [None]
  - HYPERHIDROSIS [None]
